FAERS Safety Report 7476890-5 (Version None)
Quarter: 2011Q2

REPORT INFORMATION
  Report Type: 
  Country: None (occurrence: None)
  Receive Date: 20110512
  Receipt Date: 20100921
  Transmission Date: 20111010
  Serious: Yes (Hospitalization, Other)
  Sender: FDA-Public Use
  Company Number: US-BAYER-201029572NA

PATIENT
  Age: 24 Year
  Sex: Female
  Weight: 63.492 kg

DRUGS (8)
  1. ISOTRETINOIN [Concomitant]
     Indication: ACNE
     Dosage: UNK
     Dates: start: 20070701
  2. BACTRIM [Concomitant]
     Indication: ACNE
     Dosage: UNK
     Dates: start: 20010101, end: 20060101
  3. YAZ [Suspect]
     Indication: PREMENSTRUAL SYNDROME
     Dosage: UNK UNK, UNK
     Route: 048
     Dates: start: 20070801, end: 20080501
  4. WOMEN+#8217;S ONE-DAY VITAMINS [Concomitant]
  5. YASMIN [Suspect]
     Indication: PREMENSTRUAL SYNDROME
     Dosage: UNK UNK, UNK
     Route: 048
     Dates: start: 20040801, end: 20060801
  6. BACTRIM [Concomitant]
     Dosage: UNK
     Dates: start: 20020101, end: 20070101
  7. ACCUTANE [Concomitant]
     Indication: ACNE
     Dosage: UNK
     Dates: start: 20070101, end: 20080101
  8. IBUPROFEN [Concomitant]

REACTIONS (2)
  - ANXIETY [None]
  - PULMONARY EMBOLISM [None]
